FAERS Safety Report 19456897 (Version 1)
Quarter: 2021Q2

REPORT INFORMATION
  Report Type: Spontaneous
  Country: US (occurrence: US)
  Receive Date: 20210624
  Receipt Date: 20210624
  Transmission Date: 20210717
  Serious: Yes (Other)
  Sender: FDA-Public Use
  Company Number: US-AUROBINDO-AUR-APL-2021-026410

PATIENT
  Age: 79 Year
  Sex: Male

DRUGS (2)
  1. DEXAMETHASONE. [Suspect]
     Active Substance: DEXAMETHASONE
     Indication: COVID-19 PNEUMONIA
     Dosage: 6 MILLIGRAM, DAILY
     Route: 042
  2. REMDESIVIR. [Concomitant]
     Active Substance: REMDESIVIR
     Indication: PRODUCT USED FOR UNKNOWN INDICATION
     Dosage: 200 MG X 1, THEN 100 MG DAILY
     Route: 042

REACTIONS (4)
  - Pneumonia [Unknown]
  - Mucormycosis [Unknown]
  - Bronchopulmonary aspergillosis [Unknown]
  - Off label use [Unknown]
